FAERS Safety Report 15479579 (Version 1)
Quarter: 2018Q4

REPORT INFORMATION
  Report Type: Other
  Country: BD (occurrence: BD)
  Receive Date: 20181009
  Receipt Date: 20181009
  Transmission Date: 20190205
  Serious: Yes (Other)
  Sender: FDA-Public Use
  Company Number: BD-KNIGHT THERAPEUTICS (USA) INC.-2055860

PATIENT
  Age: 18 Year
  Sex: Male

DRUGS (1)
  1. IMPAVIDO [Suspect]
     Active Substance: MILTEFOSINE
     Indication: VISCERAL LEISHMANIASIS
     Route: 048

REACTIONS (2)
  - Intentional product misuse [Recovered/Resolved]
  - Keratitis [Recovered/Resolved]
